FAERS Safety Report 7161866-8 (Version None)
Quarter: 2010Q4

REPORT INFORMATION
  Report Type: 
  Country: None (occurrence: None)
  Receive Date: 20101215
  Receipt Date: 20100709
  Transmission Date: 20110411
  Serious: Yes (Other)
  Sender: FDA-Public Use
  Company Number: US-PFIZER INC-2008037373

PATIENT
  Sex: Female
  Weight: 127 kg

DRUGS (4)
  1. LYRICA [Suspect]
     Indication: SPINAL COLUMN STENOSIS
     Dosage: 50 MG, 3X/DAY
     Route: 048
     Dates: start: 20080422
  2. LYRICA [Suspect]
     Indication: FIBROMYALGIA
  3. OXYCODONE [Concomitant]
     Dosage: UNK
  4. OXYCONTIN [Concomitant]
     Dosage: UNK

REACTIONS (8)
  - BLOOD PRESSURE ABNORMAL [None]
  - DIABETES MELLITUS [None]
  - DYSPNOEA [None]
  - LIP SWELLING [None]
  - MEMORY IMPAIRMENT [None]
  - PAIN [None]
  - TOOTH INFECTION [None]
  - TOOTHACHE [None]
